FAERS Safety Report 5141996-2 (Version None)
Quarter: 2006Q4

REPORT INFORMATION
  Report Type: 
  Country: None (occurrence: None)
  Receive Date: 20061102
  Receipt Date: 20061024
  Transmission Date: 20070319
  Serious: Yes (Disabling, Other)
  Sender: FDA-Public Use
  Company Number: SE-JNJFOC-20040908327

PATIENT
  Age: 62 Year
  Sex: Female

DRUGS (10)
  1. REMICADE [Suspect]
     Route: 042
  2. REMICADE [Suspect]
     Route: 042
  3. REMICADE [Suspect]
     Route: 042
  4. REMICADE [Suspect]
     Route: 042
  5. REMICADE [Suspect]
     Indication: RHEUMATOID ARTHRITIS
     Route: 042
  6. METHOTREXATE [Concomitant]
     Route: 065
  7. CELEBRA [Concomitant]
     Route: 065
  8. ALVEDON [Concomitant]
     Route: 065
  9. CALCICHEW D3 [Concomitant]
     Route: 065
  10. PREDNISOLON [Concomitant]
     Route: 065

REACTIONS (4)
  - CONDITION AGGRAVATED [None]
  - OPPORTUNISTIC INFECTION [None]
  - PNEUMONIA [None]
  - PUSTULAR PSORIASIS [None]
